FAERS Safety Report 6266266-0 (Version None)
Quarter: 2009Q3

REPORT INFORMATION
  Report Type: 
  Country: None (occurrence: None)
  Receive Date: 20090713
  Receipt Date: 20090708
  Transmission Date: 20100115
  Serious: Yes (Death, Hospitalization, Disabling)
  Sender: FDA-Public Use
  Company Number: GB-WYE-G03109709

PATIENT
  Weight: 10 kg

DRUGS (10)
  1. TYGACIL [Suspect]
     Indication: RESPIRATORY TRACT INFECTION
     Dosage: 1.5 MG/KG LOADING DOSE
     Route: 042
     Dates: start: 20090131, end: 20090131
  2. TYGACIL [Suspect]
     Route: 042
     Dates: start: 20090131, end: 20090209
  3. SPIRONOLACTONE [Concomitant]
     Route: 042
  4. SPIRONOLACTONE [Concomitant]
     Route: 050
  5. SEPTRIN [Concomitant]
     Indication: LYMPHOHISTIOCYTOSIS
     Route: 042
  6. SEPTRIN [Concomitant]
     Route: 050
  7. DEXAMETHASONE [Concomitant]
     Indication: LYMPHOHISTIOCYTOSIS
     Route: 042
  8. CLOBAZAM [Concomitant]
     Indication: CONVULSION
     Dates: end: 20090211
  9. CYCLOSPORINE [Concomitant]
     Indication: LYMPHOHISTIOCYTOSIS
     Route: 042
  10. CYCLOSPORINE [Concomitant]
     Route: 050

REACTIONS (2)
  - INTESTINAL PERFORATION [None]
  - SEPSIS [None]
